FAERS Safety Report 18990504 (Version 2)
Quarter: 2021Q1

REPORT INFORMATION
  Report Type: Report from Study
  Country: CO (occurrence: CO)
  Receive Date: 20210310
  Receipt Date: 20210327
  Transmission Date: 20210420
  Serious: Yes (Hospitalization)
  Sender: FDA-Public Use
  Company Number: NVSC2021CO025238

PATIENT
  Sex: Female

DRUGS (1)
  1. KISQALI [Suspect]
     Active Substance: RIBOCICLIB
     Indication: BREAST CANCER METASTATIC
     Dosage: 600 MG, QD
     Route: 048

REACTIONS (8)
  - Dizziness [Unknown]
  - Illness [Unknown]
  - Drug ineffective [Unknown]
  - Metastasis [Unknown]
  - Urinary tract infection [Unknown]
  - Vomiting [Unknown]
  - Constipation [Unknown]
  - Thyroid disorder [Unknown]
